FAERS Safety Report 9014855 (Version 3)
Quarter: 2013Q2

REPORT INFORMATION
  Report Type: Spontaneous
  Country: US (occurrence: US)
  Receive Date: 20130116
  Receipt Date: 20130627
  Transmission Date: 20140414
  Serious: Yes (Hospitalization)
  Sender: FDA-Public Use
  Company Number: US-BIOGENIDEC-2013BI003062

PATIENT
  Age: 50 Year
  Sex: Female

DRUGS (4)
  1. AVONEX [Suspect]
     Indication: MULTIPLE SCLEROSIS
     Route: 030
  2. AVONEX [Suspect]
     Indication: MULTIPLE SCLEROSIS
     Route: 030
     Dates: start: 20110803
  3. AVONEX [Suspect]
     Indication: MULTIPLE SCLEROSIS
     Route: 030
     Dates: start: 20120106
  4. MORPHINE [Concomitant]
     Indication: NECK PAIN

REACTIONS (14)
  - Staphylococcal infection [Recovered/Resolved]
  - Head injury [Recovered/Resolved]
  - Fall [Recovered/Resolved]
  - Periorbital contusion [Recovered/Resolved]
  - Loss of control of legs [Recovered/Resolved]
  - Mental disorder due to a general medical condition [Recovered/Resolved]
  - Face injury [Recovered/Resolved]
  - Amnesia [Unknown]
  - Hearing impaired [Not Recovered/Not Resolved]
  - Sluggishness [Not Recovered/Not Resolved]
  - Local swelling [Not Recovered/Not Resolved]
  - Nasopharyngitis [Not Recovered/Not Resolved]
  - Drug dose omission [Recovered/Resolved]
  - Influenza like illness [Not Recovered/Not Resolved]
